FAERS Safety Report 9444667 (Version 1)
Quarter: 2013Q3

REPORT INFORMATION
  Report Type: Spontaneous
  Country: US (occurrence: US)
  Receive Date: 20130807
  Receipt Date: 20130807
  Transmission Date: 20140515
  Serious: Yes (Hospitalization)
  Sender: FDA-Public Use
  Company Number: US-PFIZER INC-2013228255

PATIENT
  Age: 63 Year
  Sex: Female
  Weight: 100 kg

DRUGS (5)
  1. NEURONTIN [Suspect]
     Indication: NERVE INJURY
     Dosage: 300 MG IN THE MORNING AND 600 MG AT NIGHT, 2X/DAY
  2. LYRICA [Suspect]
     Indication: NERVE INJURY
     Dosage: UNK
  3. HYDROCODONE [Concomitant]
     Indication: PAIN
     Dosage: UNK, 4X/DAY
  4. PLAVIX [Concomitant]
     Indication: CARDIAC DISORDER
     Dosage: 75 MG/DAY
  5. HYOSCYAMINE [Concomitant]
     Indication: CYSTITIS
     Dosage: 0.375 MG, EVERY 12 HOURS

REACTIONS (4)
  - Musculoskeletal disorder [Unknown]
  - Arthropathy [Unknown]
  - Drug ineffective [Unknown]
  - Feeling abnormal [Unknown]
